FAERS Safety Report 8366527-5 (Version None)
Quarter: 2012Q1

REPORT INFORMATION
  Report Type: 
  Country: None (occurrence: None)
  Receive Date: 20120323
  Receipt Date: 20110512
  Transmission Date: 20120608
  Serious: Yes (Other)
  Sender: FDA-Public Use
  Company Number: 163-21880-11041143

PATIENT
  Age: 88 Year
  Sex: Male
  Weight: 83.0083 kg

DRUGS (21)
  1. MELATONIN (MELATONIN)(UNKNOWN) [Concomitant]
  2. LASIX [Concomitant]
  3. ARANESP (DARBEPOETIN ALFA)(UNKNOWN) [Concomitant]
  4. CLONIDINE [Concomitant]
  5. FOLIC ACID (FOLIC ACID)(UNKNOWN) [Concomitant]
  6. LOSARTAN POTASSIUM [Concomitant]
  7. VITAMIN B12 (CYANOCOBALAMIN)(UNKNOWN) [Concomitant]
  8. WELLBUTRIN (BUPROPION HYDROCHLORIDE)(UNKNOWN) [Concomitant]
  9. PRILOSEC (OMEPRAZOLE)(UNKNOWN) [Concomitant]
  10. ISOSORB (ISOSORBIDE)(UNKNOWN) [Concomitant]
  11. XANAX [Concomitant]
  12. LEVOTHYROX (LEVOTHYROXINE SODIUM)(UNKNOWN) [Concomitant]
  13. VITAMIN D (ERGOCALCIFEROL)(UNKNOWN) [Concomitant]
  14. LIPITOR [Concomitant]
  15. POTASSIUM (POTASSIUM)(UNKNOWN) [Concomitant]
  16. REVLIMID [Suspect]
     Indication: MULTIPLE MYELOMA
     Dosage: 25 MG, QD, FOR 21 DAYS, PO, 15 MG, X 21 DAYS, PO
     Route: 048
     Dates: start: 20110128
  17. REVLIMID [Suspect]
     Indication: MULTIPLE MYELOMA
     Dosage: 25 MG, QD, FOR 21 DAYS, PO, 15 MG, X 21 DAYS, PO
     Route: 048
     Dates: start: 20110501
  18. AMLODIPINE [Concomitant]
  19. GARLIC (GARLIC)(UNKNOWN) [Concomitant]
  20. PLAVIX [Concomitant]
  21. PROPRANOL (PROPRANOLOL HYDROCHLORIDE)(UNKNOWN) [Concomitant]

REACTIONS (2)
  - RED BLOOD CELL COUNT DECREASED [None]
  - WHITE BLOOD CELL COUNT DECREASED [None]
